FAERS Safety Report 14972477 (Version 1)
Quarter: 2018Q2

REPORT INFORMATION
  Report Type: Spontaneous
  Country: US (occurrence: US)
  Receive Date: 20180605
  Receipt Date: 20180605
  Transmission Date: 20180711
  Serious: No
  Sender: FDA-Public Use
  Company Number: US-ASTRAZENECA-2018SE62492

PATIENT
  Sex: Female

DRUGS (1)
  1. TAGRISSO [Suspect]
     Active Substance: OSIMERTINIB
     Indication: LUNG NEOPLASM MALIGNANT
     Route: 048
     Dates: start: 2015

REACTIONS (6)
  - Myopathy [Unknown]
  - Memory impairment [Unknown]
  - Cognitive disorder [Unknown]
  - Gait inability [Unknown]
  - Urinary retention [Unknown]
  - Neurological symptom [Unknown]
